FAERS Safety Report 24790625 (Version 1)
Quarter: 2024Q4

REPORT INFORMATION
  Report Type: Spontaneous
  Country: IT (occurrence: IT)
  Receive Date: 20241230
  Receipt Date: 20241230
  Transmission Date: 20250115
  Serious: Yes (Hospitalization)
  Sender: EISAI
  Company Number: None

PATIENT
  Age: 15 Year
  Sex: Female

DRUGS (2)
  1. RUFINAMIDE [Suspect]
     Active Substance: RUFINAMIDE
     Indication: Lennox-Gastaut syndrome
     Dosage: TITRATED UP TO A DOSAGE OF 400 MG IN THE MORNING AND 800 MG IN THE EVENING
     Route: 048
     Dates: start: 20240720, end: 20240823
  2. RUFINAMIDE [Suspect]
     Active Substance: RUFINAMIDE
     Indication: Trisomy 21

REACTIONS (1)
  - Drug reaction with eosinophilia and systemic symptoms [Recovered/Resolved]

NARRATIVE: CASE EVENT DATE: 20240820
